FAERS Safety Report 22067015 (Version 1)
Quarter: 2023Q1

REPORT INFORMATION
  Report Type: Spontaneous
  Country: US (occurrence: US)
  Receive Date: 20230306
  Receipt Date: 20230306
  Transmission Date: 20230417
  Serious: No
  Sender: FDA-Public Use
  Company Number: US-EVERSANA-2022-PLX-00004

PATIENT

DRUGS (1)
  1. VAZALORE [Suspect]
     Active Substance: ASPIRIN
     Indication: Arthralgia
     Dosage: 325 MILLIGRAM
     Route: 048
     Dates: start: 20220116, end: 20220116

REACTIONS (3)
  - Epigastric discomfort [None]
  - Abdominal discomfort [None]
  - Abdominal pain upper [None]

NARRATIVE: CASE EVENT DATE: 20220116
